FAERS Safety Report 18712504 (Version 1)
Quarter: 2021Q1

REPORT INFORMATION
  Report Type: Spontaneous
  Country: FR (occurrence: FR)
  Receive Date: 20210107
  Receipt Date: 20210107
  Transmission Date: 20210419
  Serious: Yes (Hospitalization)
  Sender: FDA-Public Use
  Company Number: FR-TEVA-2021-FR-1865940

PATIENT
  Age: 36 Year
  Sex: Female

DRUGS (8)
  1. MYFORTIC 180 MG, COMPRIME PELLICULE GASTRO?RESISTANT [Concomitant]
     Indication: PROPHYLAXIS AGAINST TRANSPLANT REJECTION
     Dosage: 720MG
     Route: 048
     Dates: start: 20201008
  2. CLOPIDOGREL [Suspect]
     Active Substance: CLOPIDOGREL BISULFATE
     Indication: THROMBOSIS PROPHYLAXIS
     Dosage: 75MG
     Route: 048
     Dates: start: 20201202, end: 20201206
  3. CHOLURSO 250 MG, COMPRIME PELLICULE [Concomitant]
     Indication: CHOLESTASIS
     Dosage: 2DF
     Route: 048
  4. ROVALCYTE 450 MG, COMPRIME PELLICULE [Concomitant]
     Active Substance: VALGANCICLOVIR HYDROCHLORIDE
     Indication: OPPORTUNISTIC INFECTION PROPHYLAXIS
     Dosage: 2DF
     Route: 048
     Dates: start: 20201008
  5. PREDNISONE. [Concomitant]
     Active Substance: PREDNISONE
     Indication: PROPHYLAXIS AGAINST TRANSPLANT REJECTION
     Dosage: 10MG
     Route: 048
     Dates: start: 20201008
  6. KARDEGIC [Interacting]
     Active Substance: ASPIRIN DL-LYSINE
     Indication: THROMBOSIS PROPHYLAXIS
     Dosage: 1DF
     Route: 048
     Dates: start: 20201202, end: 20201206
  7. PROGRAF [Concomitant]
     Active Substance: TACROLIMUS
     Indication: PROPHYLAXIS AGAINST TRANSPLANT REJECTION
     Dosage: 3MG
     Route: 048
     Dates: start: 20201008
  8. LANSOPRAZOLE. [Concomitant]
     Active Substance: LANSOPRAZOLE
     Indication: PROPHYLAXIS AGAINST GASTROINTESTINAL ULCER
     Dosage: 15MG
     Route: 048

REACTIONS (4)
  - Drug interaction [Recovering/Resolving]
  - Anaemia [Recovering/Resolving]
  - Epistaxis [Recovering/Resolving]
  - Hypotension [Recovered/Resolved]

NARRATIVE: CASE EVENT DATE: 20201203
